APPROVED DRUG PRODUCT: AZELASTINE HYDROCHLORIDE
Active Ingredient: AZELASTINE HYDROCHLORIDE
Strength: 0.137MG/SPRAY
Dosage Form/Route: SPRAY, METERED;NASAL
Application: A202609 | Product #001
Applicant: PADAGIS US LLC
Approved: Mar 17, 2017 | RLD: No | RS: No | Type: DISCN